FAERS Safety Report 12433426 (Version 1)
Quarter: 2016Q2

REPORT INFORMATION
  Report Type: Spontaneous
  Country: US (occurrence: US)
  Receive Date: 20160603
  Receipt Date: 20160603
  Transmission Date: 20160815
  Serious: Yes (Other)
  Sender: FDA-Public Use
  Company Number: PHEH2016US013334

PATIENT
  Sex: Female

DRUGS (1)
  1. LETROZOLE. [Suspect]
     Active Substance: LETROZOLE
     Indication: METASTASES TO BONE
     Dosage: 125 MG, UNK
     Route: 065

REACTIONS (6)
  - Skin hypertrophy [Unknown]
  - Alopecia [Unknown]
  - Dry skin [Unknown]
  - Skin exfoliation [Unknown]
  - Pneumonia [Unknown]
  - Hair texture abnormal [Unknown]
